FAERS Safety Report 5321584-5 (Version None)
Quarter: 2007Q1

REPORT INFORMATION
  Report Type: 
  Country: None (occurrence: None)
  Receive Date: 20070215
  Receipt Date: 20061103
  Transmission Date: 20070707
  Serious: No
  Sender: FDA-Public Use
  Company Number: 200616461BWH

PATIENT
  Age: 69 Year
  Sex: Male

DRUGS (1)
  1. NEXAVAR [Suspect]
     Indication: RENAL CELL CARCINOMA STAGE UNSPECIFIED
     Dosage: 400 MG BID ORAL, 200 MG BID ORAL
     Route: 048
     Dates: start: 20061021

REACTIONS (4)
  - BLISTER [None]
  - ERYTHEMA [None]
  - PAIN IN EXTREMITY [None]
  - PLANTAR ERYTHEMA [None]
